FAERS Safety Report 8445921-8 (Version None)
Quarter: 2012Q2

REPORT INFORMATION
  Report Type: 
  Country: None (occurrence: None)
  Receive Date: 20120611
  Receipt Date: 20120517
  Transmission Date: 20120825
  Serious: Yes (Hospitalization)
  Sender: FDA-Public Use
  Company Number: 001215499A

PATIENT
  Age: 52 Year
  Sex: Female

DRUGS (1)
  1. PRINCIPAL SECRET RECLAIM DAY CREAM SPF 15 [Suspect]
     Dosage: TWICE DAILY
     Dates: start: 20120329, end: 20120401

REACTIONS (1)
  - SWELLING FACE [None]
